FAERS Safety Report 16034646 (Version 1)
Quarter: 2019Q1

REPORT INFORMATION
  Report Type: Report from Study
  Country: US (occurrence: US)
  Receive Date: 20190305
  Receipt Date: 20190305
  Transmission Date: 20190418
  Serious: Yes (Other)
  Sender: FDA-Public Use
  Company Number: US-AUROBINDO-AUR-APL-2019-010705

PATIENT

DRUGS (1)
  1. SILDENAFIL. [Suspect]
     Active Substance: SILDENAFIL
     Indication: PULMONARY HYPERTENSION
     Dosage: 1 MILLIGRAM/KILOGRAM EVERY 8 HOURS

REACTIONS (3)
  - Nasal congestion [Unknown]
  - Off label use [Unknown]
  - Bronchospasm [Unknown]
